FAERS Safety Report 7781698-7 (Version None)
Quarter: 2011Q3

REPORT INFORMATION
  Report Type: 
  Country: None (occurrence: None)
  Receive Date: 20110927
  Receipt Date: 20110922
  Transmission Date: 20111222
  Serious: Yes (Hospitalization)
  Sender: FDA-Public Use
  Company Number: US-GLAXOSMITHKLINE-A0759031A

PATIENT
  Age: 47 Year
  Sex: Male
  Weight: 113.6 kg

DRUGS (7)
  1. METFORMIN HCL [Concomitant]
     Dates: start: 20040101
  2. TRICOR [Concomitant]
  3. ACTOS [Concomitant]
     Dates: start: 19970101
  4. AMARYL [Concomitant]
     Dates: start: 20000101
  5. AVANDIA [Suspect]
     Indication: TYPE 2 DIABETES MELLITUS
     Dosage: 4MG TWICE PER DAY
     Route: 048
     Dates: start: 20050317, end: 20051025
  6. GLUCOPHAGE [Concomitant]
     Dates: start: 20000101
  7. AVANDAMET [Suspect]
     Indication: TYPE 2 DIABETES MELLITUS
     Dosage: 2MG TWICE PER DAY
     Route: 048
     Dates: start: 20040709, end: 20050210

REACTIONS (2)
  - MYOCARDIAL INFARCTION [None]
  - MYOCARDIAL ISCHAEMIA [None]
